FAERS Safety Report 9426071 (Version 3)
Quarter: 2014Q3

REPORT INFORMATION
  Report Type: Spontaneous
  Country: JP (occurrence: JP)
  Receive Date: 20130730
  Receipt Date: 20140715
  Transmission Date: 20150326
  Serious: Yes (Death, Other)
  Sender: FDA-Public Use
  Company Number: JP-ROCHE-1251847

PATIENT
  Age: 55 Year
  Sex: Female
  Weight: 53 kg

DRUGS (9)
  1. XELODA [Suspect]
     Active Substance: CAPECITABINE
     Indication: SMALL INTESTINE CARCINOMA METASTATIC
     Dosage: DOSAGE IS UNCERTAIN.
     Route: 048
  2. 5-FU [Suspect]
     Active Substance: FLUOROURACIL
     Indication: SMALL INTESTINE CARCINOMA METASTATIC
     Dosage: DOSAGE IS UNCERTAIN.
     Route: 041
  3. AVASTIN [Suspect]
     Active Substance: BEVACIZUMAB
     Indication: SMALL INTESTINE CARCINOMA METASTATIC
     Dosage: DOSAGE IS UNCERTAIN.
     Route: 041
  4. XELODA [Suspect]
     Active Substance: CAPECITABINE
     Indication: OFF LABEL USE
     Dosage: DOSAGE IS UNCERTAIN.
     Route: 048
  5. IRINOTECAN HYDROCHLORIDE. [Suspect]
     Active Substance: IRINOTECAN HYDROCHLORIDE
     Indication: SMALL INTESTINE CARCINOMA METASTATIC
     Dosage: DOSAGE IS UNCERTAIN.
     Route: 042
  6. ELPLAT [Suspect]
     Active Substance: OXALIPLATIN
     Indication: SMALL INTESTINE CARCINOMA METASTATIC
     Dosage: DOSAGE IS UNCERTAIN.
     Route: 042
  7. CALCIUM LEVOFOLINATE [Suspect]
     Active Substance: LEVOLEUCOVORIN CALCIUM
     Indication: SMALL INTESTINE CARCINOMA METASTATIC
     Dosage: DOSAGE IS UNCERTAIN.
     Route: 042
  8. ELPLAT [Suspect]
     Active Substance: OXALIPLATIN
     Indication: SMALL INTESTINE CARCINOMA METASTATIC
     Dosage: DOSAGE IS UNCERTAIN.
     Route: 042
  9. 5-FU [Suspect]
     Active Substance: FLUOROURACIL
     Indication: SMALL INTESTINE CARCINOMA METASTATIC
     Dosage: DOSAGE IS UNCERTAIN.
     Route: 040

REACTIONS (6)
  - Drug hypersensitivity [Unknown]
  - Off label use [Unknown]
  - Lung disorder [Unknown]
  - Neuropathy peripheral [Unknown]
  - Skin disorder [Unknown]
  - Disease progression [Fatal]
